FAERS Safety Report 7704474-X (Version None)
Quarter: 2011Q3

REPORT INFORMATION
  Report Type: 
  Country: None (occurrence: None)
  Receive Date: 20110823
  Receipt Date: 20110817
  Transmission Date: 20111222
  Serious: Yes (Other)
  Sender: FDA-Public Use
  Company Number: NZ-ABBOTT-11P-118-0846970-00

PATIENT
  Sex: Female

DRUGS (1)
  1. HUMIRA [Suspect]
     Indication: PSORIASIS

REACTIONS (9)
  - PARAESTHESIA [None]
  - SENSORY DISTURBANCE [None]
  - BACK PAIN [None]
  - PNEUMONIA [None]
  - CHEST PAIN [None]
  - MYOCARDIAL INFARCTION [None]
  - GENERAL PHYSICAL CONDITION ABNORMAL [None]
  - HYPOAESTHESIA [None]
  - DYSPNOEA [None]
